FAERS Safety Report 7250346-7 (Version None)
Quarter: 2011Q1

REPORT INFORMATION
  Report Type: 
  Country: None (occurrence: None)
  Receive Date: 20110128
  Receipt Date: 20110121
  Transmission Date: 20110831
  Serious: Yes (Other)
  Sender: FDA-Public Use
  Company Number: JP-PFIZER INC-2011011067

PATIENT
  Age: 81 Year
  Sex: Female

DRUGS (7)
  1. ERYTHROCIN LACTOBIONATE [Concomitant]
     Dosage: 500 MG, 2X/DAY
  2. SOLU-MEDROL [Suspect]
     Dosage: 500 MG, 2X/DAY
  3. AMLODIPINE [Concomitant]
     Dosage: 5 MG, 1X/DAY
  4. LASIX [Concomitant]
     Dosage: 20 MG, 1X/DAY
  5. UNASYN [Suspect]
     Dosage: 1.5 MG, 2X/DAY
  6. GLYBURIDE [Concomitant]
     Dosage: 1.25 MG, 1X/DAY
  7. PAXIL [Concomitant]
     Dosage: UNK

REACTIONS (1)
  - PLATELET COUNT DECREASED [None]
